FAERS Safety Report 7640248-6 (Version None)
Quarter: 2011Q3

REPORT INFORMATION
  Report Type: 
  Country: None (occurrence: None)
  Receive Date: 20110728
  Receipt Date: 20110610
  Transmission Date: 20111222
  Serious: Yes (Hospitalization)
  Sender: FDA-Public Use
  Company Number: US-BAYER-2011-049987

PATIENT
  Age: 66 Year
  Sex: Female

DRUGS (11)
  1. METOPROLOL TARTRATE [Concomitant]
  2. ASPIRIN [Concomitant]
  3. FUROSEMIDE [Concomitant]
  4. HEPARIN [Concomitant]
  5. EPTIFIBATIDE [Concomitant]
  6. MAGNEVIST [Suspect]
     Indication: ANGIOGRAM
     Dosage: 40 ML, ONCE
     Route: 042
  7. NITROGLYCERIN [Concomitant]
  8. MUCOMYST [Concomitant]
     Indication: CATHETERISATION CARDIAC
  9. RED BLOOD CELLS [Concomitant]
     Indication: ANAEMIA
  10. ISORDIL [Concomitant]
     Indication: BLOOD PRESSURE MANAGEMENT
  11. MUCOMYST [Concomitant]
     Indication: ARTERIAL CATHETERISATION

REACTIONS (1)
  - RENAL FAILURE ACUTE [None]
